FAERS Safety Report 4412625-8 (Version None)
Quarter: 2004Q2

REPORT INFORMATION
  Report Type: 
  Country: None (occurrence: None)
  Receive Date: 20040630
  Receipt Date: 20040302
  Transmission Date: 20050107
  Serious: No
  Sender: FDA-Public Use
  Company Number: 04P-163-0252048-00

PATIENT
  Age: 75 Year
  Sex: Female

DRUGS (9)
  1. HUMIRA [Suspect]
     Indication: RHEUMATOID ARTHRITIS
     Dosage: 40 MG 1 IN 2 WK SUBCUTANEOUS
     Route: 058
     Dates: start: 20030601, end: 20031201
  2. HUMULIN 70/30 [Concomitant]
  3. METFORMIN HCL [Concomitant]
  4. FUROSEMIDE [Concomitant]
  5. ATENOLOL [Concomitant]
  6. NICOTINIC ACID [Concomitant]
  7. POTASSIUM [Concomitant]
  8. ASPIRIN [Concomitant]
  9. METHOTREXATE [Concomitant]

REACTIONS (1)
  - PNEUMONIA [None]
